FAERS Safety Report 10024686 (Version 1)
Quarter: 2014Q1

REPORT INFORMATION
  Report Type: Spontaneous
  Country: US (occurrence: US)
  Receive Date: 20140320
  Receipt Date: 20140320
  Transmission Date: 20141002
  Serious: No
  Sender: FDA-Public Use
  Company Number: US-B.I. PHARMACEUTICALS,INC./RIDGEFIELD-2014-BI-11256BP

PATIENT
  Age: 67 Year
  Sex: Male

DRUGS (5)
  1. SPIRIVA [Suspect]
     Indication: CHRONIC OBSTRUCTIVE PULMONARY DISEASE
     Dosage: 18 MCG
     Route: 055
     Dates: start: 20140306, end: 20140307
  2. METFORMIN [Concomitant]
     Route: 065
  3. PROAIR [Concomitant]
     Route: 065
  4. ASPIRIN [Concomitant]
     Route: 065
  5. MULTIVITAMINS [Concomitant]
     Route: 065

REACTIONS (1)
  - Intraocular pressure test abnormal [Recovered/Resolved]
